FAERS Safety Report 19707147 (Version 1)
Quarter: 2021Q3

REPORT INFORMATION
  Report Type: Spontaneous
  Country: GB (occurrence: GB)
  Receive Date: 20210817
  Receipt Date: 20210817
  Transmission Date: 20211014
  Serious: Yes (Death, Hospitalization)
  Sender: FDA-Public Use
  Company Number: GB-TILLOMEDPR-2021-EPL-002608

PATIENT
  Age: 75 Year
  Sex: Male

DRUGS (10)
  1. TAMSULOSIN [Concomitant]
     Active Substance: TAMSULOSIN
     Dosage: 400 MICROGRAM, QD
     Dates: start: 2017
  2. FOSTAIR [Concomitant]
     Active Substance: BECLOMETHASONE\FORMOTEROL
     Dosage: PUFF. FOSTAIR SINCE 11.2.21 BUT HAS HAD VARIOUS INHALERS FOR MANY YEARS
     Route: 055
     Dates: start: 20210211
  3. PREDNISOLONE. [Concomitant]
     Active Substance: PREDNISOLONE
     Indication: ASTHMA
     Dosage: 80MG IN DEC20 REDUCED TO 30MG. SEVERAL PREVIOUS COURSES OVER THE YEARS
  4. ZOLEDRONIC ACID [Suspect]
     Active Substance: ZOLEDRONIC ACID
     Indication: PRODUCT USED FOR UNKNOWN INDICATION
     Dosage: 5 MILLIGRAM
     Route: 042
     Dates: start: 20210407
  5. PFIZER?BIONTECH COVID?19 VACCINE [Suspect]
     Active Substance: TOZINAMERAN
     Dosage: DOSE 2
     Dates: start: 20210331, end: 20210331
  6. CALCIUM AND COLECALCIFEROL [Concomitant]
     Active Substance: CALCIUM\CHOLECALCIFEROL
     Dosage: 1 DOSAGE FORM, QD
     Dates: start: 202012
  7. PFIZER?BIONTECH COVID?19 VACCINE [Suspect]
     Active Substance: TOZINAMERAN
     Indication: IMMUNISATION
     Dosage: DOSE 1
     Dates: start: 20210115, end: 20210115
  8. ASPIRIN. [Concomitant]
     Active Substance: ASPIRIN
     Dosage: 75 MILLIGRAM, QD
     Dates: start: 202012
  9. ESOMEPRAZOLE. [Concomitant]
     Active Substance: ESOMEPRAZOLE MAGNESIUM
     Dosage: SINCE AT LEAST 2008
     Dates: start: 2008
  10. SALBUTAMOL [Concomitant]
     Active Substance: ALBUTEROL
     Dosage: SINCE AT LEAST 2008
     Dates: start: 2008

REACTIONS (4)
  - Fatigue [Unknown]
  - Syncope [Unknown]
  - Pulmonary embolism [Fatal]
  - Dyspnoea [Unknown]

NARRATIVE: CASE EVENT DATE: 20210408
